FAERS Safety Report 7714008-1 (Version None)
Quarter: 2011Q3

REPORT INFORMATION
  Report Type: 
  Country: None (occurrence: None)
  Receive Date: 20110826
  Receipt Date: 20110817
  Transmission Date: 20111222
  Serious: Yes (Hospitalization, Other)
  Sender: FDA-Public Use
  Company Number: US-RB-028614-11

PATIENT
  Age: 35 Year
  Sex: Female

DRUGS (1)
  1. SUBOXONE [Suspect]
     Indication: PRODUCT USED FOR UNKNOWN INDICATION
     Dosage: SUBLINGUAL FILM - DOSING DETAILS UNKNOWN
     Route: 065

REACTIONS (7)
  - COUGH [None]
  - DRUG WITHDRAWAL SYNDROME [None]
  - OEDEMA PERIPHERAL [None]
  - RASH [None]
  - BRONCHITIS [None]
  - OFF LABEL USE [None]
  - DEHYDRATION [None]
